FAERS Safety Report 19192526 (Version 96)
Quarter: 2025Q3

REPORT INFORMATION
  Report Type: Spontaneous
  Country: US (occurrence: US)
  Receive Date: 20210428
  Receipt Date: 20250915
  Transmission Date: 20251021
  Serious: Yes (Disabling, Other)
  Sender: PFIZER
  Company Number: US-PFIZER INC-2021432292

PATIENT
  Age: 72 Year
  Sex: Female

DRUGS (10)
  1. PREMARIN [Suspect]
     Active Substance: ESTROGENS, CONJUGATED
     Indication: Hormone therapy
     Dosage: 0.625 MG, 1X/DAY
  2. PREMARIN [Suspect]
     Active Substance: ESTROGENS, CONJUGATED
     Indication: Vulvovaginal dryness
     Dosage: 0.625 MG, ALTERNATE DAY
  3. PREMARIN [Suspect]
     Active Substance: ESTROGENS, CONJUGATED
     Dosage: 0.625 MG, 2X/DAY
  4. PREMARIN [Suspect]
     Active Substance: ESTROGENS, CONJUGATED
     Indication: Vulvovaginal dryness
     Dosage: UNK, ONCE A DAY
  5. PREMARIN [Suspect]
     Active Substance: ESTROGENS, CONJUGATED
     Indication: Hormone therapy
     Dosage: UNK, EVERY OTHER DAY
  6. PREMARIN [Suspect]
     Active Substance: ESTROGENS, CONJUGATED
  7. PREMARIN [Suspect]
     Active Substance: ESTROGENS, CONJUGATED
     Dosage: SHE HAS BEEN TAKING IT DAILY
  8. PREMARIN [Suspect]
     Active Substance: ESTROGENS, CONJUGATED
  9. PREMARIN [Suspect]
     Active Substance: ESTROGENS, CONJUGATED
  10. PREMARIN [Suspect]
     Active Substance: ESTROGENS, CONJUGATED

REACTIONS (25)
  - Herpes zoster [Unknown]
  - Blindness unilateral [Unknown]
  - Herpes ophthalmic [Unknown]
  - Eye pain [Not Recovered/Not Resolved]
  - Deafness [Unknown]
  - Urticaria [Unknown]
  - Off label use [Unknown]
  - Intentional product misuse [Unknown]
  - Dysphonia [Unknown]
  - Memory impairment [Unknown]
  - Malaise [Unknown]
  - Scar [Unknown]
  - Fatigue [Unknown]
  - Depression [Unknown]
  - Neuralgia [Unknown]
  - Influenza [Unknown]
  - Headache [Unknown]
  - Blood glucose decreased [Unknown]
  - Brain fog [Unknown]
  - Nerve injury [Unknown]
  - Cough [Unknown]
  - Throat irritation [Unknown]
  - Dysphonia [Unknown]
  - Oropharyngeal pain [Unknown]
  - Intentional product misuse [Unknown]

NARRATIVE: CASE EVENT DATE: 20180101
